FAERS Safety Report 7525386-0 (Version None)
Quarter: 2011Q2

REPORT INFORMATION
  Report Type: 
  Country: None (occurrence: None)
  Receive Date: 20110606
  Receipt Date: 20110527
  Transmission Date: 20111010
  Serious: Yes (Hospitalization, Other)
  Sender: FDA-Public Use
  Company Number: JP-ROCHE-728599

PATIENT
  Age: 73 Year
  Sex: Female

DRUGS (2)
  1. PEG-INTRON [Suspect]
     Route: 058
     Dates: start: 20060901, end: 20070701
  2. REBETOL [Suspect]
     Indication: HEPATITIS C
     Route: 048
     Dates: start: 20060901, end: 20070801

REACTIONS (5)
  - NEPHROTIC SYNDROME [None]
  - RENAL FAILURE ACUTE [None]
  - CARDIAC FAILURE CONGESTIVE [None]
  - BONE MARROW FAILURE [None]
  - GLOMERULONEPHRITIS MEMBRANOPROLIFERATIVE [None]
